FAERS Safety Report 6371244-7 (Version None)
Quarter: 2009Q3

REPORT INFORMATION
  Report Type: 
  Country: None (occurrence: None)
  Receive Date: 20090923
  Receipt Date: 20070906
  Transmission Date: 20100115
  Serious: No
  Sender: FDA-Public Use
  Company Number: US-ASTRAZENECA-2007UW02130

PATIENT
  Age: 50 Year
  Sex: Female
  Weight: 106 kg

DRUGS (4)
  1. SEROQUEL [Suspect]
     Indication: INSOMNIA
     Route: 048
     Dates: start: 20011001
  2. SEROQUEL [Suspect]
     Dosage: 200-600 MG
     Route: 048
     Dates: start: 20020816
  3. ATENOLOL [Concomitant]
     Route: 048
     Dates: start: 20031003
  4. CLONAZEPAM [Concomitant]
     Dosage: 1-2 MG
     Route: 048
     Dates: start: 20031003

REACTIONS (6)
  - BLOOD CHOLESTEROL INCREASED [None]
  - DYSLIPIDAEMIA [None]
  - HYPERTENSION [None]
  - MIXED HYPERLIPIDAEMIA [None]
  - OBESITY [None]
  - TYPE 2 DIABETES MELLITUS [None]
